FAERS Safety Report 25235527 (Version 2)
Quarter: 2025Q3

REPORT INFORMATION
  Report Type: Report from Study
  Country: ZA (occurrence: ZA)
  Receive Date: 20250424
  Receipt Date: 20250802
  Transmission Date: 20251021
  Serious: Yes (Hospitalization)
  Sender: ALEXION PHARMACEUTICALS
  Company Number: ZA-AstraZeneca-CH-00851440A

PATIENT
  Age: 37 Year
  Sex: Female

DRUGS (8)
  1. BUDESONIDE\FORMOTEROL [Suspect]
     Active Substance: BUDESONIDE\FORMOTEROL
     Indication: Asthma
  2. Venteze [Concomitant]
     Indication: Bronchospasm
  3. INDOMETHACIN [Concomitant]
     Active Substance: INDOMETHACIN
  4. Adco Dol [Concomitant]
     Route: 065
  5. ALLOPURINOL [Concomitant]
     Active Substance: ALLOPURINOL
     Indication: Gout
  6. THEOPHYLLINE ANHYDROUS [Concomitant]
     Active Substance: THEOPHYLLINE ANHYDROUS
     Indication: Bronchospasm
  7. Ferrous forte [Concomitant]
     Route: 065
  8. Anin [Concomitant]
     Indication: Hypertension

REACTIONS (1)
  - Cystitis [Unknown]
